FAERS Safety Report 7594589-1 (Version None)
Quarter: 2011Q3

REPORT INFORMATION
  Report Type: 
  Country: None (occurrence: None)
  Receive Date: 20110707
  Receipt Date: 20110629
  Transmission Date: 20111222
  Serious: Yes (Death)
  Sender: FDA-Public Use
  Company Number: US-CELGENEUS-163-21880-11063894

PATIENT
  Sex: Female

DRUGS (14)
  1. REVLIMID [Suspect]
     Dosage: 25 MILLIGRAM
     Route: 048
     Dates: start: 20101201
  2. ATIVAN [Concomitant]
     Route: 065
  3. DILAUDID [Concomitant]
     Route: 065
  4. REVLIMID [Suspect]
     Indication: MULTIPLE MYELOMA
     Dosage: 15 MILLIGRAM
     Route: 048
     Dates: start: 20090501, end: 20100101
  5. PRILOSEC [Concomitant]
     Route: 065
  6. PROCHLORPERAZINE TAB [Concomitant]
     Route: 065
  7. COLACE [Concomitant]
     Route: 065
  8. MIRALAX [Concomitant]
     Route: 065
  9. BIAXIN [Concomitant]
     Route: 065
  10. LASIX [Concomitant]
     Route: 065
  11. AMBIEN [Concomitant]
     Route: 065
  12. OXYCONTIN [Concomitant]
     Route: 065
  13. SENNA [Concomitant]
     Route: 065
  14. DEXAMETHASONE [Concomitant]
     Route: 065

REACTIONS (11)
  - TENDERNESS [None]
  - BACK PAIN [None]
  - MUSCLE SPASMS [None]
  - IMMUNODEFICIENCY [None]
  - UPPER RESPIRATORY TRACT INFECTION [None]
  - RASH [None]
  - DEATH [None]
  - PAIN [None]
  - DYSPNOEA [None]
  - OEDEMA PERIPHERAL [None]
  - PULMONARY EMBOLISM [None]
